FAERS Safety Report 7522741-X (Version None)
Quarter: 2011Q2

REPORT INFORMATION
  Report Type: 
  Country: None (occurrence: None)
  Receive Date: 20110603
  Receipt Date: 20110525
  Transmission Date: 20111010
  Serious: Yes (Death)
  Sender: FDA-Public Use
  Company Number: JP-ACTELION-A-CH2011-47602

PATIENT
  Sex: Female
  Weight: 36 kg

DRUGS (9)
  1. TRACLEER [Suspect]
     Dosage: 62.5 MG, BID
     Route: 048
     Dates: start: 20100112, end: 20100214
  2. CANDESARTAN CILEXETIL [Concomitant]
  3. SPIRONOLACTONE [Concomitant]
  4. TRACLEER [Suspect]
     Indication: PULMONARY ARTERIAL HYPERTENSION
     Dosage: 125 MG, BID
     Route: 048
     Dates: start: 20100305, end: 20100412
  5. TRACLEER [Suspect]
     Dosage: 62.5 MG, TID
     Route: 048
     Dates: start: 20100215, end: 20100304
  6. AZOSEMIDE [Concomitant]
  7. WARFARIN POTASSIUM [Concomitant]
  8. FUROSEMIDE [Concomitant]
  9. OXYGEN [Concomitant]

REACTIONS (5)
  - RESPIRATORY FAILURE [None]
  - C-REACTIVE PROTEIN INCREASED [None]
  - INTERSTITIAL LUNG DISEASE [None]
  - BLOOD PRESSURE DECREASED [None]
  - HEPATIC FUNCTION ABNORMAL [None]
